FAERS Safety Report 12171197 (Version 1)
Quarter: 2016Q1

REPORT INFORMATION
  Report Type: Spontaneous
  Country: US (occurrence: None)
  Receive Date: 20160310
  Receipt Date: 20160310
  Transmission Date: 20160526
  Serious: Yes (Other)
  Sender: FDA-Public Use
  Company Number: None

PATIENT
  Age: 61 Year
  Sex: Male

DRUGS (1)
  1. RIBAVIRIN. [Suspect]
     Active Substance: RIBAVIRIN
     Indication: HEPATITIS C
     Dosage: STRENGTH: 200 ORAL BID
     Route: 048
     Dates: start: 20160205, end: 20160209

REACTIONS (7)
  - Dizziness [None]
  - Retching [None]
  - Rash [None]
  - Swollen tongue [None]
  - Nausea [None]
  - Pruritus [None]
  - Vomiting [None]

NARRATIVE: CASE EVENT DATE: 20160205
